FAERS Safety Report 10327747 (Version 2)
Quarter: 2014Q3

REPORT INFORMATION
  Report Type: Spontaneous
  Country: US (occurrence: US)
  Receive Date: 20140721
  Receipt Date: 20140924
  Transmission Date: 20150326
  Serious: Yes (Other)
  Sender: FDA-Public Use
  Company Number: US-AMGEN-USASP2014053120

PATIENT
  Age: 87 Year
  Sex: Female

DRUGS (1)
  1. PROLIA [Suspect]
     Active Substance: DENOSUMAB
     Indication: OSTEOPOROSIS POSTMENOPAUSAL
     Dosage: UNK
     Route: 065
     Dates: start: 201212

REACTIONS (11)
  - Pollakiuria [Unknown]
  - Femur fracture [Unknown]
  - Oropharyngeal discomfort [Unknown]
  - Tooth disorder [Unknown]
  - Arthralgia [Unknown]
  - Hypothyroidism [Unknown]
  - Bone pain [Unknown]
  - Myalgia [Unknown]
  - Hypertension [Unknown]
  - Fall [Unknown]
  - Bursa disorder [Unknown]

NARRATIVE: CASE EVENT DATE: 201307
